FAERS Safety Report 17064672 (Version 1)
Quarter: 2019Q4

REPORT INFORMATION
  Report Type: Spontaneous
  Country: GB (occurrence: GB)
  Receive Date: 20191122
  Receipt Date: 20191122
  Transmission Date: 20200122
  Serious: Yes (Disabling)
  Sender: FDA-Public Use
  Company Number: GB-TEVA-2019-GB-1139576

PATIENT
  Age: 70 Year
  Sex: Male

DRUGS (6)
  1. TAMSULOSIN [Concomitant]
     Active Substance: TAMSULOSIN
     Dosage: ONGOING, LONG TERM TREATMENT
     Dates: start: 20170403
  2. DARBEPOETIN ALFA [Concomitant]
     Active Substance: DARBEPOETIN ALFA
     Dosage: SHORT COURSE - EXACT LENGTH UNKNOWN
     Dates: start: 20180409
  3. FILGRASTIM [Suspect]
     Active Substance: FILGRASTIM
     Route: 065
     Dates: start: 20180409, end: 20180430
  4. EPOETIN ALFA [Concomitant]
     Active Substance: ERYTHROPOIETIN
  5. ARANESP [Concomitant]
     Active Substance: DARBEPOETIN ALFA
  6. NEORECORMON [Concomitant]
     Active Substance: ERYTHROPOIETIN
     Dosage: ONGOING
     Dates: start: 20180409

REACTIONS (2)
  - Inadequate osteointegration [Not Recovered/Not Resolved]
  - Dental restoration failure [Not Recovered/Not Resolved]

NARRATIVE: CASE EVENT DATE: 20180416
